FAERS Safety Report 5507885-6 (Version None)
Quarter: 2007Q4

REPORT INFORMATION
  Report Type: 
  Country: None (occurrence: None)
  Receive Date: 20071106
  Receipt Date: 20071026
  Transmission Date: 20080405
  Serious: Yes (Other)
  Sender: FDA-Public Use
  Company Number: US-JNJFOC-20071004471

PATIENT
  Age: 69 Year
  Sex: Male
  Weight: 70.31 kg

DRUGS (11)
  1. TOPAMAX [Suspect]
     Route: 048
  2. TOPAMAX [Suspect]
     Route: 048
  3. TOPAMAX [Suspect]
     Route: 048
  4. TOPAMAX [Suspect]
     Dosage: 75 MG IN AM; 75 MG IN PM
     Route: 048
  5. TOPAMAX [Suspect]
     Indication: CONVULSION
     Dosage: 50 MG IN AM; 75 MG IN PM
     Route: 048
  6. LAMICTAL [Concomitant]
  7. LAMICTAL [Concomitant]
     Indication: CONVULSION
  8. KEPPRA [Concomitant]
     Indication: CONVULSION
     Route: 048
  9. VITAMINS [Concomitant]
     Indication: MEDICAL DIET
     Route: 048
  10. VITAMIN D [Concomitant]
     Indication: MEDICAL DIET
     Route: 048
  11. ASPIRIN [Concomitant]
     Route: 048

REACTIONS (9)
  - CONVULSION [None]
  - DRY THROAT [None]
  - EYE PAIN [None]
  - FALL [None]
  - MOUTH BREATHING [None]
  - PALPITATIONS [None]
  - SKIN PAPILLOMA [None]
  - TONGUE DRY [None]
  - TREMOR [None]
